FAERS Safety Report 6017337-5 (Version None)
Quarter: 2008Q4

REPORT INFORMATION
  Report Type: 
  Country: None (occurrence: None)
  Receive Date: 20081223
  Receipt Date: 20081213
  Transmission Date: 20090506
  Serious: Yes (Hospitalization)
  Sender: FDA-Public Use
  Company Number: JP-BAYER-200812447BYL

PATIENT
  Age: 69 Year
  Sex: Male
  Weight: 59 kg

DRUGS (8)
  1. NEXAVAR [Suspect]
     Indication: RENAL CELL CARCINOMA STAGE IV
     Dosage: UNIT DOSE: 200 MG
     Route: 048
     Dates: start: 20080825, end: 20080923
  2. NEXAVAR [Suspect]
     Dosage: UNIT DOSE: 200 MG
     Route: 048
     Dates: start: 20080924, end: 20081006
  3. SIMVASTATIN [Concomitant]
     Dosage: TOTAL DAILY DOSE: 5 MG  UNIT DOSE: 5 MG
     Route: 048
  4. TENORMIN [Concomitant]
     Dosage: TOTAL DAILY DOSE: 50 MG  UNIT DOSE: 50 MG
     Route: 048
  5. BUFFERIN [Concomitant]
     Dosage: TOTAL DAILY DOSE: 81 MG  UNIT DOSE: 81 MG
     Route: 048
  6. SOLCOSERYL [Concomitant]
     Route: 061
  7. PETROLATUM SALICYLATE [Concomitant]
     Route: 061
  8. AMARYL [Concomitant]
     Dosage: TOTAL DAILY DOSE: 1 MG  UNIT DOSE: 1 MG
     Route: 048

REACTIONS (14)
  - ALANINE AMINOTRANSFERASE INCREASED [None]
  - ALOPECIA [None]
  - ASPARTATE AMINOTRANSFERASE INCREASED [None]
  - BLOOD AMYLASE INCREASED [None]
  - BLOOD BILIRUBIN INCREASED [None]
  - DECREASED APPETITE [None]
  - GAMMA-GLUTAMYLTRANSFERASE INCREASED [None]
  - HEPATIC FUNCTION ABNORMAL [None]
  - HYPERTENSION [None]
  - HYPOPHOSPHATAEMIA [None]
  - HYPOTHYROIDISM [None]
  - LIPASE INCREASED [None]
  - MALAISE [None]
  - PLATELET COUNT DECREASED [None]
